FAERS Safety Report 9893370 (Version 1)
Quarter: 2014Q1

REPORT INFORMATION
  Report Type: Spontaneous
  Country: US (occurrence: US)
  Receive Date: 20140213
  Receipt Date: 20140213
  Transmission Date: 20141002
  Serious: Yes (Other)
  Sender: FDA-Public Use
  Company Number: US-JNJFOC-20140204142

PATIENT
  Age: 51 Year
  Sex: Female

DRUGS (2)
  1. XARELTO [Suspect]
     Indication: ATRIAL FIBRILLATION
     Route: 048
     Dates: end: 201301
  2. XARELTO [Suspect]
     Indication: CEREBROVASCULAR ACCIDENT PROPHYLAXIS
     Route: 048
     Dates: end: 201301

REACTIONS (5)
  - Gallbladder operation [Unknown]
  - Mesenteric artery thrombosis [Recovered/Resolved]
  - Peripheral artery thrombosis [Recovered/Resolved]
  - Renal infarct [Recovered/Resolved]
  - Hepatic infarction [Recovered/Resolved]
